FAERS Safety Report 4974193-1 (Version None)
Quarter: 2006Q2

REPORT INFORMATION
  Report Type: 
  Country: None (occurrence: None)
  Receive Date: 20060417
  Receipt Date: 20050527
  Transmission Date: 20061013
  Serious: Yes (Hospitalization, Disabling)
  Sender: FDA-Public Use
  Company Number: US-MERCK-0505USA03396

PATIENT
  Age: 46 Year
  Sex: Male
  Weight: 81 kg

DRUGS (4)
  1. VIOXX [Suspect]
     Indication: JOINT SWELLING
     Route: 048
     Dates: start: 20030508, end: 20030526
  2. VIOXX [Suspect]
     Route: 048
     Dates: start: 20030508, end: 20030526
  3. IBUPROFEN [Concomitant]
     Route: 065
  4. VICODIN [Concomitant]
     Route: 065

REACTIONS (32)
  - ACUTE CORONARY SYNDROME [None]
  - ACUTE MYOCARDIAL INFARCTION [None]
  - AMPUTATION [None]
  - ANGIOPATHY [None]
  - AORTIC VALVE INCOMPETENCE [None]
  - ARTERIAL DISORDER [None]
  - ARTERIOSCLEROSIS [None]
  - ARTERIOVENOUS FISTULA [None]
  - BACK PAIN [None]
  - BACTERIAL SEPSIS [None]
  - BONE CYST [None]
  - CARDIAC FAILURE CONGESTIVE [None]
  - CATHETER SEPSIS [None]
  - CORONARY ARTERY DISEASE [None]
  - CORONARY ARTERY STENOSIS [None]
  - CYST [None]
  - DIALYSIS [None]
  - EMOTIONAL DISTRESS [None]
  - GANGRENE [None]
  - HYPERLIPIDAEMIA [None]
  - HYPERTENSIVE HEART DISEASE [None]
  - IMPAIRED HEALING [None]
  - LEG AMPUTATION [None]
  - MALIGNANT HYPERTENSION [None]
  - MIXED HYPERLIPIDAEMIA [None]
  - MYOCARDIAL INFARCTION [None]
  - PERIPHERAL ISCHAEMIA [None]
  - PERIPHERAL VASCULAR DISORDER [None]
  - RENAL FAILURE ACUTE [None]
  - RENAL FAILURE CHRONIC [None]
  - SKIN ULCER [None]
  - THROMBOSIS [None]
